FAERS Safety Report 17713639 (Version 1)
Quarter: 2020Q2

REPORT INFORMATION
  Report Type: Spontaneous
  Country: US (occurrence: US)
  Receive Date: 20200427
  Receipt Date: 20200427
  Transmission Date: 20200714
  Serious: Yes (Other)
  Sender: FDA-Public Use
  Company Number: US-ROCHE-2543049

PATIENT
  Age: 12 Year
  Sex: Male
  Weight: 68.55 kg

DRUGS (4)
  1. XOFLUZA [Suspect]
     Active Substance: BALOXAVIR MARBOXIL
     Indication: INFLUENZA
     Dosage: TWO 40 MG TABLETS TAKEN AT THE SAME TIME.
     Route: 048
     Dates: start: 20200202, end: 20200202
  2. IBUPROFEN. [Concomitant]
     Active Substance: IBUPROFEN
     Indication: PYREXIA
     Dosage: 20 ML EVERY 6 HOURS PRN
     Route: 048
     Dates: start: 20200202
  3. BENADRYL [Concomitant]
     Active Substance: DIPHENHYDRAMINE HYDROCHLORIDE
     Dosage: 25 ML EVERY 6 HOURS PRN
     Route: 048
     Dates: start: 20200202
  4. TYLENOL [Concomitant]
     Active Substance: ACETAMINOPHEN
     Indication: PYREXIA
     Dosage: 20 ML EVERY 4 HOURS PRN
     Route: 048
     Dates: start: 20200202

REACTIONS (1)
  - Anaphylactic shock [Recovered/Resolved]

NARRATIVE: CASE EVENT DATE: 20200202
